FAERS Safety Report 20824063 (Version 1)
Quarter: 2022Q2

REPORT INFORMATION
  Report Type: Spontaneous
  Country: BE (occurrence: BE)
  Receive Date: 20220513
  Receipt Date: 20220513
  Transmission Date: 20220721
  Serious: Yes (Hospitalization, Other)
  Sender: FDA-Public Use
  Company Number: BE-GLAXOSMITHKLINE-BE2022EME069174

PATIENT
  Age: 53 Year
  Sex: Male

DRUGS (1)
  1. AMOXICILLIN [Suspect]
     Active Substance: AMOXICILLIN
     Indication: Dental disorder prophylaxis
     Dosage: UNK
     Route: 065

REACTIONS (13)
  - Anaphylactic reaction [Unknown]
  - Arteriosclerosis coronary artery [Unknown]
  - Kounis syndrome [Unknown]
  - Electrocardiogram ST segment elevation [Unknown]
  - Abdominal pain lower [Unknown]
  - Chest pain [Unknown]
  - Defaecation urgency [Unknown]
  - Dizziness [Unknown]
  - Hyperhidrosis [Unknown]
  - Pruritus [Unknown]
  - Urticaria [Unknown]
  - Vasospasm [Unknown]
  - Wheezing [Unknown]
